FAERS Safety Report 11926319 (Version 1)
Quarter: 2016Q1

REPORT INFORMATION
  Report Type: Spontaneous
  Country: CA (occurrence: CA)
  Receive Date: 20160119
  Receipt Date: 20160119
  Transmission Date: 20160526
  Serious: Yes (Hospitalization, Other)
  Sender: FDA-Public Use
  Company Number: CA-CIPLA LTD.-2016CA00152

PATIENT

DRUGS (5)
  1. DONEPEZIL. [Suspect]
     Active Substance: DONEPEZIL
     Indication: DEMENTIA ALZHEIMER^S TYPE
     Dosage: 5 MG, QD
     Route: 065
  2. RAMIPRIL. [Concomitant]
     Active Substance: RAMIPRIL
     Indication: HYPERTENSION
     Dosage: 2.5 MG, QD
     Route: 065
  3. DULOXETINE. [Suspect]
     Active Substance: DULOXETINE
     Indication: FIBROMYALGIA
  4. DONEPEZIL. [Suspect]
     Active Substance: DONEPEZIL
     Dosage: 10 MG, QD
     Route: 065
  5. DULOXETINE. [Suspect]
     Active Substance: DULOXETINE
     Indication: MAJOR DEPRESSION
     Dosage: 30 MG, QD
     Route: 065

REACTIONS (19)
  - Aggression [Recovered/Resolved]
  - Marital problem [Unknown]
  - Tearfulness [Recovered/Resolved]
  - Flight of ideas [Recovered/Resolved]
  - Loose associations [Recovered/Resolved]
  - Disturbance in social behaviour [Recovered/Resolved]
  - Jealous delusion [Recovered/Resolved]
  - Affect lability [Recovered/Resolved]
  - Grandiosity [Recovered/Resolved]
  - Cognitive disorder [Recovered/Resolved]
  - Insomnia [Recovered/Resolved]
  - Euphoric mood [Recovered/Resolved]
  - Pressure of speech [Recovered/Resolved]
  - Judgement impaired [Recovered/Resolved]
  - Physical assault [Unknown]
  - Mania [Recovered/Resolved]
  - Irritability [Recovered/Resolved]
  - Hypersexuality [Recovered/Resolved]
  - Psychomotor hyperactivity [Recovered/Resolved]
